FAERS Safety Report 4788058-1 (Version None)
Quarter: 2005Q4

REPORT INFORMATION
  Report Type: 
  Country: None (occurrence: None)
  Receive Date: 20051005
  Receipt Date: 20000615
  Transmission Date: 20060501
  Serious: Yes (Hospitalization)
  Sender: FDA-Public Use
  Company Number: US-SP-U2000-00490

PATIENT
  Age: 21 Year

DRUGS (5)
  1. MENOMUNE-A/C/Y/W-135 [Suspect]
     Indication: IMMUNISATION
     Route: 065
     Dates: start: 20000512
  2. MENOMUNE-A/C/Y/W-135 [Suspect]
     Route: 065
     Dates: start: 20000512
  3. TD ADS ADULT [Suspect]
     Indication: IMMUNISATION
     Route: 065
  4. FLU-INFLUENZA VIRUS VACCINE [Suspect]
     Indication: IMMUNISATION
     Route: 065
  5. TUBERSOL [Suspect]
     Indication: TUBERCULIN TEST
     Route: 065

REACTIONS (5)
  - ASTHENIA [None]
  - CHILLS [None]
  - GUILLAIN-BARRE SYNDROME [None]
  - PHARYNGOLARYNGEAL PAIN [None]
  - PYREXIA [None]
